FAERS Safety Report 8579147 (Version 5)
Quarter: 2014Q1

REPORT INFORMATION
  Report Type: Spontaneous
  Country: US (occurrence: US)
  Receive Date: 20120524
  Receipt Date: 20140211
  Transmission Date: 20141002
  Serious: Yes (Disabling, Other)
  Sender: FDA-Public Use
  Company Number: US-009507513-1205USA02860

PATIENT
  Sex: Female
  Weight: 58.5 kg

DRUGS (3)
  1. FOSAMAX [Suspect]
     Indication: OSTEOPENIA
     Dosage: 5 MG, QD
     Route: 048
     Dates: start: 20000130, end: 200010
  2. FOSAMAX [Suspect]
     Indication: PROPHYLAXIS
     Dosage: 10 MG, QD
     Route: 048
     Dates: start: 20000130, end: 200010
  3. FOSAMAX [Suspect]
     Dosage: 40 MG, M-F
     Route: 048
     Dates: start: 20001006

REACTIONS (32)
  - Femur fracture [Unknown]
  - Osteoporosis [Unknown]
  - Stress fracture [Unknown]
  - Bone density decreased [Unknown]
  - Hand fracture [Unknown]
  - Calcium deficiency [Unknown]
  - Osteopenia [Unknown]
  - Ankle fracture [Recovered/Resolved with Sequelae]
  - Spinal osteoarthritis [Unknown]
  - Rib fracture [Recovering/Resolving]
  - Fall [Unknown]
  - Rib fracture [Unknown]
  - Joint dislocation [Unknown]
  - Feeling abnormal [Unknown]
  - Withdrawal syndrome [Unknown]
  - Sinusitis [Unknown]
  - Bronchitis [Unknown]
  - Bursitis [Unknown]
  - Anxiety [Unknown]
  - Depression [Unknown]
  - Osteoporosis [Unknown]
  - Depression [Unknown]
  - Tooth disorder [Unknown]
  - Inappropriate schedule of drug administration [Unknown]
  - Impaired healing [Unknown]
  - Nasal discomfort [Unknown]
  - Vitamin D deficiency [Unknown]
  - Bone pain [Unknown]
  - Vertigo [Unknown]
  - Pain in extremity [Unknown]
  - Back pain [Unknown]
  - Gastritis [Recovered/Resolved]
